FAERS Safety Report 24283030 (Version 1)
Quarter: 2024Q3

REPORT INFORMATION
  Report Type: Spontaneous
  Country: JP (occurrence: JP)
  Receive Date: 20240904
  Receipt Date: 20240904
  Transmission Date: 20241016
  Serious: Yes (Death)
  Sender: BAYER
  Company Number: JP-BAYER-2024A126348

PATIENT
  Sex: Male

DRUGS (2)
  1. NUBEQA [Suspect]
     Active Substance: DAROLUTAMIDE
     Indication: Prostate cancer metastatic
     Dosage: DAILY DOSE 1200 MG
  2. DOCETAXEL [Suspect]
     Active Substance: DOCETAXEL\DOCETAXEL ANHYDROUS
     Indication: Prostate cancer metastatic

REACTIONS (2)
  - Pneumocystis jirovecii pneumonia [Fatal]
  - Immunodeficiency [Fatal]
